FAERS Safety Report 4301289-X (Version None)
Quarter: 2004Q1

REPORT INFORMATION
  Report Type: 
  Country: None (occurrence: None)
  Receive Date: 20040219
  Receipt Date: 20040205
  Transmission Date: 20041129
  Serious: Yes (Hospitalization)
  Sender: FDA-Public Use
  Company Number: 2004IM000292

PATIENT
  Sex: Female

DRUGS (1)
  1. INFERAX (INTERFERON ALFACON-1) [Suspect]

REACTIONS (3)
  - BLINDNESS [None]
  - FIBROSIS [None]
  - MACULOPATHY [None]
